FAERS Safety Report 5647016-5 (Version None)
Quarter: 2008Q1

REPORT INFORMATION
  Report Type: 
  Country: None (occurrence: None)
  Receive Date: 20080303
  Receipt Date: 20080220
  Transmission Date: 20080703
  Serious: Yes (Hospitalization)
  Sender: FDA-Public Use
  Company Number: B0510097A

PATIENT
  Age: 75 Year
  Sex: Female

DRUGS (2)
  1. ARIXTRA [Suspect]
     Dosage: 7.5MG PER DAY
     Route: 058
     Dates: start: 20080217
  2. ANTIVITAMINS K [Suspect]
     Dates: end: 20080214

REACTIONS (4)
  - ABDOMINAL PAIN [None]
  - OFF LABEL USE [None]
  - PARAPLEGIA [None]
  - SPINAL HAEMATOMA [None]
